FAERS Safety Report 21959407 (Version 1)
Quarter: 2023Q1

REPORT INFORMATION
  Report Type: Spontaneous
  Country: BE (occurrence: BE)
  Receive Date: 20230206
  Receipt Date: 20230206
  Transmission Date: 20230418
  Serious: Yes (Hospitalization)
  Sender: FDA-Public Use
  Company Number: BE-ELI_LILLY_AND_COMPANY-BE202301012468

PATIENT
  Age: 75 Year
  Sex: Female

DRUGS (3)
  1. ABEMACICLIB [Suspect]
     Active Substance: ABEMACICLIB
     Indication: Hormone receptor positive HER2 negative breast cancer
     Dosage: 150 MG, BID
     Route: 048
     Dates: start: 20221214, end: 20221230
  2. FEMARA [Concomitant]
     Active Substance: LETROZOLE
     Indication: Breast cancer
  3. AMLODIPINE [Concomitant]
     Active Substance: AMLODIPINE BESYLATE
     Indication: Product used for unknown indication

REACTIONS (15)
  - Acute kidney injury [Unknown]
  - Epistaxis [Unknown]
  - Haemorrhoids [Unknown]
  - Renal tubular necrosis [Unknown]
  - Tubulointerstitial nephritis [Unknown]
  - Breast haematoma [Unknown]
  - Full blood count abnormal [Unknown]
  - Diverticulum [Unknown]
  - Coronavirus infection [Unknown]
  - Haematochezia [Unknown]
  - Oedema peripheral [Unknown]
  - Oesophageal candidiasis [Unknown]
  - Dizziness [Unknown]
  - Vomiting [Unknown]
  - Decreased appetite [Unknown]

NARRATIVE: CASE EVENT DATE: 20221231
